FAERS Safety Report 15297260 (Version 1)
Quarter: 2018Q3

REPORT INFORMATION
  Report Type: Spontaneous
  Country: SE (occurrence: SE)
  Receive Date: 20180820
  Receipt Date: 20180820
  Transmission Date: 20181010
  Serious: Yes (Other)
  Sender: FDA-Public Use
  Company Number: SE-NOVOPROD-614229

PATIENT
  Age: 47 Year
  Sex: Male

DRUGS (3)
  1. TRESIBA [Suspect]
     Active Substance: INSULIN DEGLUDEC
     Indication: TYPE 1 DIABETES MELLITUS
     Dosage: 16 U
     Route: 065
  2. FIASP [Suspect]
     Active Substance: INSULIN ASPART
     Indication: TYPE 1 DIABETES MELLITUS
     Dosage: UNK
     Route: 065
  3. FIASP [Suspect]
     Active Substance: INSULIN ASPART
     Dosage: 16 U
     Route: 065

REACTIONS (11)
  - Apnoea [Unknown]
  - Erythema [Unknown]
  - Peripheral swelling [Unknown]
  - Product packaging confusion [Unknown]
  - Hypoglycaemic unconsciousness [Recovered/Resolved]
  - Foaming at mouth [Unknown]
  - Muscle strain [Unknown]
  - Gait disturbance [Unknown]
  - Muscle spasms [Recovered/Resolved]
  - Wrong drug administered [Unknown]
  - Pain [Unknown]

NARRATIVE: CASE EVENT DATE: 20180505
